FAERS Safety Report 7768458-8 (Version None)
Quarter: 2011Q3

REPORT INFORMATION
  Report Type: 
  Country: None (occurrence: None)
  Receive Date: 20110922
  Receipt Date: 20101116
  Transmission Date: 20111222
  Serious: No
  Sender: FDA-Public Use
  Company Number: US-ASTRAZENECA-2010SE54674

PATIENT
  Age: 50 Year
  Sex: Female

DRUGS (5)
  1. SEROQUEL [Suspect]
     Route: 048
     Dates: start: 20090101
  2. DEPAKOTE [Suspect]
     Indication: BIPOLAR DISORDER
  3. AMITRIPTYLINE HCL [Concomitant]
     Indication: SLEEP DISORDER
  4. SEROQUEL [Suspect]
     Indication: BIPOLAR DISORDER
     Route: 048
  5. SEROQUEL [Suspect]
     Dosage: A PIECE
     Route: 048

REACTIONS (14)
  - ABDOMINAL DISTENSION [None]
  - WRONG DRUG ADMINISTERED [None]
  - MANIA [None]
  - THINKING ABNORMAL [None]
  - DRUG DOSE OMISSION [None]
  - VERTIGO [None]
  - ABNORMAL BEHAVIOUR [None]
  - PARANOIA [None]
  - FEELING ABNORMAL [None]
  - TRANCE [None]
  - HEADACHE [None]
  - WEIGHT INCREASED [None]
  - OBSESSIVE-COMPULSIVE DISORDER [None]
  - DRY MOUTH [None]
